FAERS Safety Report 24109817 (Version 2)
Quarter: 2024Q3

REPORT INFORMATION
  Report Type: Spontaneous
  Country: PT (occurrence: PT)
  Receive Date: 20240718
  Receipt Date: 20240815
  Transmission Date: 20241016
  Serious: Yes (Life-Threatening, Hospitalization)
  Sender: ROCHE
  Company Number: None

PATIENT
  Age: 77 Year
  Sex: Female
  Weight: 60 kg

DRUGS (7)
  1. PERJETA [Suspect]
     Active Substance: PERTUZUMAB
     Indication: Invasive breast carcinoma
     Dosage: 420MG IN 250ML OF SODIUM CHLORIDE, EVERY 21 DAYS
     Route: 050
     Dates: start: 20240209
  2. HERZUMA [Suspect]
     Active Substance: TRASTUZUMAB-PKRB
     Indication: Invasive breast carcinoma
     Dosage: 300MG IN 235.8ML OF SODIUM CHLORIDE, EVERY 21 DAYS
     Route: 050
     Dates: start: 20240209
  3. PACLITAXEL [Suspect]
     Active Substance: PACLITAXEL
     Indication: Invasive breast carcinoma
     Dosage: 122.4MG, IN 250 ML OF SODIUM CHLORIDE, CYCLES OF 21 DAYS, IN WHICH PACLITAXEL IS ADMINISTERED WEEKLY
     Route: 050
     Dates: start: 20240209, end: 20240424
  4. BISOPROLOL [Concomitant]
     Active Substance: BISOPROLOL\BISOPROLOL FUMARATE
     Route: 048
  5. ACETAMINOPHEN [Concomitant]
     Active Substance: ACETAMINOPHEN
  6. RILMENIDINE [Concomitant]
     Active Substance: RILMENIDINE
     Route: 048
  7. VALSARTAN [Concomitant]
     Active Substance: VALSARTAN
     Route: 048

REACTIONS (2)
  - Pneumonitis [Recovered/Resolved]
  - Acute respiratory distress syndrome [Recovered/Resolved]

NARRATIVE: CASE EVENT DATE: 20240620
